FAERS Safety Report 23267325 (Version 1)
Quarter: 2023Q4

REPORT INFORMATION
  Report Type: Spontaneous
  Country: FR (occurrence: FR)
  Receive Date: 20231206
  Receipt Date: 20231206
  Transmission Date: 20240109
  Serious: Yes (Hospitalization)
  Sender: FDA-Public Use
  Company Number: None

PATIENT
  Age: 89 Year
  Sex: Female
  Weight: 66.5 kg

DRUGS (10)
  1. KARDEGIC [Suspect]
     Active Substance: ASPIRIN DL-LYSINE
     Indication: Prophylaxis
     Dosage: 1 DF, QD
     Route: 048
     Dates: end: 20200105
  2. LOVENOX [Suspect]
     Active Substance: ENOXAPARIN SODIUM
     Indication: Thrombosis prophylaxis
     Dosage: 40000 IU, QD
     Route: 042
     Dates: start: 20201209, end: 20210106
  3. AZACTAM [Suspect]
     Active Substance: AZTREONAM
     Indication: Arthritis bacterial
     Dosage: 6 G, QD
     Route: 042
     Dates: start: 20201126, end: 20210111
  4. CIPROFLOXACIN [Suspect]
     Active Substance: CIPROFLOXACIN
     Indication: Arthritis bacterial
     Dosage: 2 DF, QD
     Route: 042
     Dates: start: 20201126, end: 20210111
  5. AMLODIPINE [Concomitant]
     Active Substance: AMLODIPINE BESYLATE
     Dosage: UNK
     Route: 065
  6. ACUPAN [Concomitant]
     Active Substance: NEFOPAM HYDROCHLORIDE
     Dosage: UNK
     Route: 065
  7. OXAZEPAM [Concomitant]
     Active Substance: OXAZEPAM
     Dosage: UNK
     Route: 065
  8. DUPHALAC [Concomitant]
     Active Substance: LACTULOSE
     Dosage: UNK
     Route: 065
  9. FOLIC ACID [Concomitant]
     Active Substance: FOLIC ACID
     Dosage: UNK
     Route: 065
  10. ECONAZOLE [Concomitant]
     Active Substance: ECONAZOLE
     Dosage: UNK
     Route: 065

REACTIONS (4)
  - Prothrombin time ratio decreased [Recovering/Resolving]
  - Haemoptysis [Recovered/Resolved]
  - Anaemia [Recovered/Resolved]
  - Haematoma [Recovering/Resolving]

NARRATIVE: CASE EVENT DATE: 20210104
